FAERS Safety Report 7623179-7 (Version None)
Quarter: 2011Q3

REPORT INFORMATION
  Report Type: 
  Country: None (occurrence: None)
  Receive Date: 20110720
  Receipt Date: 20110707
  Transmission Date: 20111222
  Serious: Yes (Other)
  Sender: FDA-Public Use
  Company Number: PHHY2011US43406

PATIENT
  Sex: Female

DRUGS (5)
  1. SYNTHROID [Concomitant]
     Indication: THYROID DISORDER
     Dosage: UNK UKN, UNK
     Route: 048
  2. NEXIUM [Concomitant]
     Indication: GASTROOESOPHAGEAL REFLUX DISEASE
     Dosage: 40 MG, QD
     Route: 048
  3. GILENYA [Suspect]
     Indication: RELAPSING-REMITTING MULTIPLE SCLEROSIS
     Dosage: 0.5 MG, QD
     Route: 048
     Dates: start: 20110125, end: 20110518
  4. KLONOPIN [Concomitant]
     Indication: MULTIPLE SCLEROSIS
     Dosage: 0.5 MG, BID
  5. ZOLOFT [Concomitant]
     Indication: DEPRESSION
     Dosage: 100 MG, QD
     Route: 048

REACTIONS (9)
  - RETINAL INJURY [None]
  - EYE SWELLING [None]
  - MACULAR OEDEMA [None]
  - VISUAL ACUITY REDUCED [None]
  - VISION BLURRED [None]
  - BLEPHARITIS [None]
  - EYE PAIN [None]
  - DRY EYE [None]
  - FACIAL PARESIS [None]
